FAERS Safety Report 7291550-1 (Version None)
Quarter: 2011Q1

REPORT INFORMATION
  Report Type: 
  Country: None (occurrence: None)
  Receive Date: 20110214
  Receipt Date: 20110201
  Transmission Date: 20110831
  Serious: Yes (Other)
  Sender: FDA-Public Use
  Company Number: PHHY2011JP08338

PATIENT
  Sex: Female
  Weight: 42 kg

DRUGS (4)
  1. EXJADE [Suspect]
     Dosage: 500 MG, DAILY
     Route: 048
     Dates: start: 20100121, end: 20100630
  2. EXJADE [Suspect]
     Dosage: 500 MG, DAILY
     Route: 048
     Dates: start: 20100826, end: 20100929
  3. BONZOL [Suspect]
     Indication: APLASTIC ANAEMIA
     Dosage: 200 MG, DAILY
     Route: 048
     Dates: start: 20091210
  4. EXJADE [Suspect]
     Indication: APLASTIC ANAEMIA
     Dosage: 500 MG, DAILY
     Route: 048
     Dates: start: 20091119, end: 20091130

REACTIONS (2)
  - PAPULE [None]
  - RENAL IMPAIRMENT [None]
